FAERS Safety Report 8949044 (Version 1)
Quarter: 2012Q4

REPORT INFORMATION
  Report Type: 
  Country: GB (occurrence: GB)
  Receive Date: 20121206
  Receipt Date: 20121206
  Transmission Date: 20130627
  Serious: Yes (Hospitalization)
  Sender: FDA-Public Use
  Company Number: GB-MYLANLABS-2012S1024230

PATIENT

DRUGS (15)
  1. MIRTAZAPINE [Suspect]
     Indication: PRODUCT USED FOR UNKNOWN INDICATION
  2. OMEPRAZOLE [Suspect]
     Indication: PRODUCT USED FOR UNKNOWN INDICATION
     Route: 042
  3. HEPARIN [Suspect]
     Indication: PRODUCT USED FOR UNKNOWN INDICATION
  4. OMEGAVEN [Suspect]
     Indication: PRODUCT USED FOR UNKNOWN INDICATION
     Route: 042
  5. AMINO ACIDS\ELECTROLYTES NOS\GLUCOSE  OXIDASE [Suspect]
     Indication: PARENTERAL NUTRITION
     Dates: start: 20121026, end: 20121031
  6. BISOPROLOL [Concomitant]
     Indication: PRODUCT USED FOR UNKNOWN INDICATION
  7. CIPROFLOXACIN [Concomitant]
     Indication: PRODUCT USED FOR UNKNOWN INDICATION
  8. CODEINE [Concomitant]
     Indication: PRODUCT USED FOR UNKNOWN INDICATION
  9. LANREOTIDE [Concomitant]
     Indication: PRODUCT USED FOR UNKNOWN INDICATION
  10. LOPERAMIDE [Concomitant]
     Indication: PRODUCT USED FOR UNKNOWN INDICATION
  11. NORADRENALINE [Concomitant]
     Indication: PRODUCT USED FOR UNKNOWN INDICATION
  12. NOREPINEPHRINE [Concomitant]
     Indication: PRODUCT USED FOR UNKNOWN INDICATION
  13. NYSTATIN [Concomitant]
     Indication: PRODUCT USED FOR UNKNOWN INDICATION
     Route: 061
  14. RANITIDINE [Concomitant]
     Indication: PRODUCT USED FOR UNKNOWN INDICATION
  15. TETRACYCLINE [Concomitant]
     Indication: PRODUCT USED FOR UNKNOWN INDICATION

REACTIONS (1)
  - Blood triglycerides increased [Not Recovered/Not Resolved]
